FAERS Safety Report 22589409 (Version 1)
Quarter: 2023Q2

REPORT INFORMATION
  Report Type: Report from Study
  Country: BR (occurrence: BR)
  Receive Date: 20230612
  Receipt Date: 20230612
  Transmission Date: 20230722
  Serious: Yes (Other)
  Sender: FDA-Public Use
  Company Number: BR-002147023-NVSC2023BR132121

PATIENT
  Sex: Female

DRUGS (1)
  1. KISQALI [Suspect]
     Active Substance: RIBOCICLIB
     Indication: Breast cancer
     Dosage: UNK
     Route: 065

REACTIONS (8)
  - Renal vein thrombosis [Unknown]
  - Hepatic vascular thrombosis [Unknown]
  - Splenic thrombosis [Unknown]
  - Thrombosis [Unknown]
  - Abdominal distension [Not Recovered/Not Resolved]
  - Dysuria [Recovered/Resolved]
  - Dyschezia [Recovered/Resolved]
  - Lymphatic disorder [Unknown]
